FAERS Safety Report 9658076 (Version 1)
Quarter: 2013Q4

REPORT INFORMATION
  Report Type: Spontaneous
  Country: IT (occurrence: IT)
  Receive Date: 20131030
  Receipt Date: 20131030
  Transmission Date: 20140711
  Serious: Yes (Hospitalization)
  Sender: FDA-Public Use
  Company Number: ALCN2013IT005391

PATIENT
  Age: 81 Year
  Sex: Male

DRUGS (8)
  1. TIMOLOL [Suspect]
     Indication: GLAUCOMA
     Dosage: 1 GTT, QD
     Route: 047
     Dates: start: 20130117, end: 20130117
  2. LANTUS [Interacting]
     Indication: DIABETES MELLITUS
     Dosage: UNK
     Route: 058
     Dates: start: 20130117, end: 20130117
  3. HUMALOG [Interacting]
     Indication: DIABETES MELLITUS
     Dosage: UNK
     Route: 058
     Dates: start: 20130117, end: 20130117
  4. LASIX [Concomitant]
  5. XATRAL [Concomitant]
     Indication: BENIGN PROSTATIC HYPERPLASIA
  6. KCL RETARD ZYMA [Concomitant]
     Dosage: 600 MG, UNK
     Route: 048
  7. FRAGMIN [Concomitant]
     Indication: ATRIAL FIBRILLATION
     Dosage: 5000 UI/ 0.2 ML
     Route: 058
  8. BIMATOPROST [Concomitant]
     Indication: GLAUCOMA

REACTIONS (1)
  - Hypoglycaemia [Recovering/Resolving]
